FAERS Safety Report 21450503 (Version 3)
Quarter: 2024Q2

REPORT INFORMATION
  Report Type: Report from Study
  Country: US (occurrence: US)
  Receive Date: 20221013
  Receipt Date: 20240412
  Transmission Date: 20240716
  Serious: Yes (Hospitalization)
  Sender: FDA-Public Use
  Company Number: US-ABBVIE-4149705

PATIENT
  Sex: Female

DRUGS (1)
  1. SKYRIZI [Suspect]
     Active Substance: RISANKIZUMAB-RZAA
     Indication: Crohn^s disease
     Route: 042
     Dates: start: 202210

REACTIONS (8)
  - Rectal haemorrhage [Unknown]
  - Anal fistula [Not Recovered/Not Resolved]
  - Dysgeusia [Unknown]
  - Breast mass [Not Recovered/Not Resolved]
  - Breast swelling [Not Recovered/Not Resolved]
  - Tongue discomfort [Not Recovered/Not Resolved]
  - Proctalgia [Unknown]
  - Rectal discharge [Unknown]
